FAERS Safety Report 4513512-7 (Version None)
Quarter: 2004Q4

REPORT INFORMATION
  Report Type: 
  Country: None (occurrence: None)
  Receive Date: 20041130
  Receipt Date: 20041122
  Transmission Date: 20050328
  Serious: Yes (Other)
  Sender: FDA-Public Use
  Company Number: CH-JNJFOC-20041105178

PATIENT
  Age: 51 Year
  Sex: Male

DRUGS (3)
  1. RISPERDAL [Suspect]
     Route: 049
  2. DEROXAT [Concomitant]
     Route: 049
  3. ZINAT [Concomitant]
     Route: 049

REACTIONS (2)
  - BRADYCARDIA [None]
  - LEUKOCYTOSIS [None]
